FAERS Safety Report 12421963 (Version 1)
Quarter: 2016Q2

REPORT INFORMATION
  Report Type: Spontaneous
  Country: US (occurrence: US)
  Receive Date: 20160531
  Receipt Date: 20160531
  Transmission Date: 20160815
  Serious: No
  Sender: FDA-Public Use
  Company Number: US-ELI_LILLY_AND_COMPANY-US201605007747

PATIENT
  Sex: Female

DRUGS (15)
  1. HUMALOG [Suspect]
     Active Substance: INSULIN LISPRO
     Dosage: 16 U, EACH MORNING
     Route: 065
     Dates: start: 2015
  2. HUMALOG [Suspect]
     Active Substance: INSULIN LISPRO
     Dosage: 12 U, EACH MORNING
     Route: 065
     Dates: start: 2015
  3. LEVOTHYROXINE. [Concomitant]
     Active Substance: LEVOTHYROXINE
     Dosage: UNK, UNKNOWN
     Route: 065
  4. LISINOPRIL. [Concomitant]
     Active Substance: LISINOPRIL
     Dosage: UNK, UNKNOWN
     Route: 065
  5. ATORVASTATIN [Concomitant]
     Active Substance: ATORVASTATIN
     Dosage: UNK, UNKNOWN
     Route: 065
  6. VITAMIN D [Concomitant]
     Active Substance: CHOLECALCIFEROL
     Dosage: UNK, UNKNOWN
     Route: 065
  7. CALCIUM [Concomitant]
     Active Substance: CALCIUM
     Dosage: UNK, UNKNOWN
     Route: 065
  8. TOUJEO [Concomitant]
     Active Substance: INSULIN GLARGINE
     Dosage: UNK, UNKNOWN
     Route: 065
  9. METOPROLOL. [Concomitant]
     Active Substance: METOPROLOL
     Dosage: UNK, UNKNOWN
     Route: 065
  10. HUMALOG [Suspect]
     Active Substance: INSULIN LISPRO
     Dosage: 14 U, EACH EVENING
     Route: 065
     Dates: start: 2015
  11. AMLODIPINE [Concomitant]
     Active Substance: AMLODIPINE BESYLATE
     Dosage: UNK, UNKNOWN
     Route: 065
  12. HUMALOG [Suspect]
     Active Substance: INSULIN LISPRO
     Dosage: 16 U, EACH MORNING
     Route: 065
     Dates: start: 2015
  13. HUMALOG [Suspect]
     Active Substance: INSULIN LISPRO
     Dosage: 14 U, EACH EVENING
     Route: 065
     Dates: start: 2015
  14. HUMALOG [Suspect]
     Active Substance: INSULIN LISPRO
     Indication: TYPE 2 DIABETES MELLITUS
     Dosage: 12 U, EACH MORNING
     Route: 065
     Dates: start: 2015
  15. HYDROCHLOROTHIAZIDE. [Concomitant]
     Active Substance: HYDROCHLOROTHIAZIDE
     Dosage: UNK, UNKNOWN
     Route: 065

REACTIONS (2)
  - Herpes zoster [Recovered/Resolved]
  - Blood glucose increased [Not Recovered/Not Resolved]

NARRATIVE: CASE EVENT DATE: 201601
